FAERS Safety Report 7832888-6 (Version None)
Quarter: 2011Q4

REPORT INFORMATION
  Report Type: 
  Country: None (occurrence: None)
  Receive Date: 20111019
  Receipt Date: 20111010
  Transmission Date: 20120403
  Serious: Yes (Death, Other)
  Sender: FDA-Public Use
  Company Number: 1074191

PATIENT
  Age: 49 Year
  Sex: Male

DRUGS (7)
  1. DOXORUBICIN HCL [Suspect]
     Indication: HODGKIN'S DISEASE
     Dosage: 35 MG/M^2, ,INTRAVENOUS (NOT OTHERWISE SPECIFIED)
     Route: 042
  2. VINCRISTINE SULFATE [Suspect]
     Indication: HODGKIN'S DISEASE
     Dosage: 1.4 MG/M^2, ,INTRAVENOUS (NOT OTHERWISE SPECIFIED)
     Route: 042
  3. BLEOMYCIN SULFATE [Suspect]
     Indication: HODGKIN'S DISEASE
     Dosage: 10000 IU, , INTRAVENOUS (NOT OTHERWISE SPECIFIED)
  4. ETOPOSIDE [Suspect]
     Indication: HODGKIN'S DISEASE
     Dosage: 200 MG/M^2, , INTRAVENOUS (NOT OTHERWISE SPECIFIED)
  5. PROCARBAZINE HYDROCHLORIDE [Suspect]
     Indication: HODGKIN'S DISEASE
     Dosage: 100 MG/M^2, , ORAL
     Route: 048
  6. CYCLOPHOSPHAMIDE [Suspect]
     Indication: HODGKIN'S DISEASE
     Dosage: 1250 MG/M^2, , INTRAVENOUS (NOT OTHERWISE SPECIFIED)
     Route: 042
  7. PREDNISOLONE [Suspect]
     Indication: HODGKIN'S DISEASE
     Dosage: 40 MG/M^2, , ORAL
     Route: 048

REACTIONS (4)
  - TOXICITY TO VARIOUS AGENTS [None]
  - SEPTIC SHOCK [None]
  - PNEUMOCYSTIS JIROVECI PNEUMONIA [None]
  - BONE MARROW FAILURE [None]
